FAERS Safety Report 4618903-1 (Version None)
Quarter: 2005Q1

REPORT INFORMATION
  Report Type: 
  Country: None (occurrence: None)
  Receive Date: 20050323
  Receipt Date: 20050304
  Transmission Date: 20050727
  Serious: Yes (Hospitalization)
  Sender: FDA-Public Use
  Company Number: BDI-007006

PATIENT
  Age: 69 Year
  Sex: Female

DRUGS (2)
  1. ISOVUE-300 [Suspect]
     Indication: COMPUTERISED TOMOGRAM THORAX
     Dosage: 150 ML ONCE IV
     Route: 042
     Dates: start: 20050304, end: 20050304
  2. ISOVUE-300 [Suspect]
     Indication: LUNG NEOPLASM MALIGNANT
     Dosage: 150 ML ONCE IV
     Route: 042
     Dates: start: 20050304, end: 20050304

REACTIONS (6)
  - COMPARTMENT SYNDROME [None]
  - HYPOAESTHESIA [None]
  - INJECTION SITE EXTRAVASATION [None]
  - INJECTION SITE VESICLES [None]
  - OEDEMA PERIPHERAL [None]
  - PAIN IN EXTREMITY [None]
